FAERS Safety Report 10668123 (Version 4)
Quarter: 2015Q1

REPORT INFORMATION
  Report Type: Spontaneous
  Country: FR (occurrence: FR)
  Receive Date: 20141222
  Receipt Date: 20150204
  Transmission Date: 20150720
  Serious: Yes (Hospitalization, Other)
  Sender: FDA-Public Use
  Company Number: PHHY2014FR165638

PATIENT
  Age: 10 Year
  Sex: Male
  Weight: 37 kg

DRUGS (3)
  1. RITALINE LP [Suspect]
     Active Substance: METHYLPHENIDATE HYDROCHLORIDE
     Indication: ATTENTION DEFICIT/HYPERACTIVITY DISORDER
     Dosage: 20 MG, QW61D (6 TIMES A WEEK)
     Route: 065
     Dates: start: 201303
  2. RITALINE LP [Suspect]
     Active Substance: METHYLPHENIDATE HYDROCHLORIDE
     Indication: DYSLEXIA
     Dosage: 20 MG, QD
     Route: 048
     Dates: start: 201304
  3. RITALINE LP [Suspect]
     Active Substance: METHYLPHENIDATE HYDROCHLORIDE
     Indication: NEUROPSYCHIATRIC SYNDROME
     Dosage: 20 MG, QW61D (6 TIMES A WEEK)
     Route: 065
     Dates: start: 20141209, end: 20141211

REACTIONS (10)
  - Abnormal behaviour [Recovered/Resolved]
  - Headache [Recovered/Resolved]
  - Sleep terror [Not Recovered/Not Resolved]
  - Hypertension [Recovered/Resolved]
  - Tremor [Recovered/Resolved]
  - Dyskinesia [Recovered/Resolved]
  - Mydriasis [Recovered/Resolved]
  - Hallucination [Recovered/Resolved]
  - Somnambulism [Not Recovered/Not Resolved]
  - Tachycardia [Recovered/Resolved]

NARRATIVE: CASE EVENT DATE: 201401
